FAERS Safety Report 10460260 (Version 1)
Quarter: 2014Q3

REPORT INFORMATION
  Report Type: Spontaneous
  Country: US (occurrence: US)
  Receive Date: 20140917
  Receipt Date: 20140917
  Transmission Date: 20150326
  Serious: No
  Sender: FDA-Public Use
  Company Number: US-ASTRAZENECA-2014SE67460

PATIENT
  Age: 56 Year
  Sex: Female
  Weight: 69.4 kg

DRUGS (2)
  1. SYMBICORT [Suspect]
     Active Substance: BUDESONIDE\FORMOTEROL FUMARATE DIHYDRATE
     Indication: ASTHMA
     Dosage: 160 4.5, 2 PUFFS BID
     Route: 055
     Dates: start: 20140731
  2. PRESNISONE [Concomitant]
     Indication: RHEUMATOID ARTHRITIS

REACTIONS (3)
  - Intentional product misuse [Not Recovered/Not Resolved]
  - Dyspnoea [Recovered/Resolved]
  - Circumstance or information capable of leading to medication error [Recovered/Resolved]
